FAERS Safety Report 25422711 (Version 1)
Quarter: 2025Q2

REPORT INFORMATION
  Report Type: Spontaneous
  Country: US (occurrence: US)
  Receive Date: 20250611
  Receipt Date: 20250611
  Transmission Date: 20250716
  Serious: Yes (Other)
  Sender: BLUEPRINT MEDICINES
  Company Number: US-Blueprint Medicines Corporation-2025-AER-01219

PATIENT
  Age: 78 Year
  Sex: Female

DRUGS (1)
  1. AYVAKIT [Suspect]
     Active Substance: AVAPRITINIB
     Indication: Lung carcinoma cell type unspecified stage I
     Route: 065
     Dates: start: 20241225

REACTIONS (4)
  - Vaginal cancer stage IVA [Unknown]
  - Metastases to lung [Unknown]
  - Swelling [Recovering/Resolving]
  - Alopecia [Recovered/Resolved]
